FAERS Safety Report 6715918-4 (Version None)
Quarter: 2010Q2

REPORT INFORMATION
  Report Type: 
  Country: None (occurrence: None)
  Receive Date: 20100507
  Receipt Date: 20100504
  Transmission Date: 20101027
  Serious: Yes (Death, Hospitalization, Other)
  Sender: FDA-Public Use
  Company Number: PHHY2010US27728

PATIENT
  Sex: Female
  Weight: 71 kg

DRUGS (7)
  1. EXJADE [Suspect]
     Indication: SICKLE CELL ANAEMIA
     Dosage: 1000 MG, UNK
     Route: 048
     Dates: start: 20060101
  2. EXJADE [Suspect]
     Indication: IRON METABOLISM DISORDER
     Dosage: 500 MG, QD
     Route: 048
     Dates: end: 20100401
  3. METOPROLOL [Concomitant]
     Indication: BLOOD PRESSURE
     Dosage: 10 MG, BID
     Route: 048
     Dates: end: 20100417
  4. LASIX [Concomitant]
     Indication: CARDIAC FAILURE
     Dosage: 20 MG, QD
     Route: 048
     Dates: end: 20100417
  5. METHADONE HCL [Concomitant]
     Indication: PAIN
     Dosage: 10 MG, BID
     Route: 048
  6. POTASSIUM [Concomitant]
     Dosage: 20 MG, QD
     Route: 048
     Dates: end: 20100417
  7. NEXIUM [Concomitant]
     Indication: GASTROOESOPHAGEAL REFLUX DISEASE
     Dosage: UNK
     Route: 048
     Dates: end: 20100417

REACTIONS (7)
  - CARDIAC FAILURE CONGESTIVE [None]
  - DEATH [None]
  - HYPERGLYCAEMIA [None]
  - LIVER FUNCTION TEST ABNORMAL [None]
  - RENAL FAILURE [None]
  - RENAL FAILURE ACUTE [None]
  - TYPE 2 DIABETES MELLITUS [None]
